FAERS Safety Report 5771962-5 (Version None)
Quarter: 2008Q2

REPORT INFORMATION
  Report Type: 
  Country: None (occurrence: None)
  Receive Date: 20080612
  Receipt Date: 20080612
  Transmission Date: 20081010
  Serious: Yes (Death)
  Sender: FDA-Public Use
  Company Number: None

PATIENT
  Age: 26 Year
  Sex: Female
  Weight: 70 kg

DRUGS (11)
  1. DEFIBROTIDE [Suspect]
     Indication: VENOOCCLUSIVE LIVER DISEASE
     Dosage: 460 MG EVERY 6 HOURS IV DRIP
     Route: 041
     Dates: start: 20080606, end: 20080608
  2. GANCICLOVIR [Concomitant]
  3. LACTULOSE [Concomitant]
  4. METHADONE HCL [Concomitant]
  5. SOLU-MEDROL [Concomitant]
  6. MICAFUNGIN [Concomitant]
  7. MYCOPHENOLATE MOFETIL [Concomitant]
  8. ZOSYN [Concomitant]
  9. SEROQUEL [Concomitant]
  10. RIFAXIMIN [Concomitant]
  11. DILAUDID [Concomitant]

REACTIONS (3)
  - DIALYSIS [None]
  - GENERAL PHYSICAL HEALTH DETERIORATION [None]
  - RENAL FAILURE ACUTE [None]
